FAERS Safety Report 20649704 (Version 1)
Quarter: 2022Q1

REPORT INFORMATION
  Report Type: Spontaneous
  Country: US (occurrence: US)
  Receive Date: 20220329
  Receipt Date: 20220329
  Transmission Date: 20220423
  Serious: No
  Sender: FDA-Public Use
  Company Number: US-SEBELA IRELAND LIMITED-2021SEB00071

PATIENT
  Age: 66 Year
  Sex: Female
  Weight: 57.37 kg

DRUGS (11)
  1. NAFTIN [Suspect]
     Active Substance: NAFTIFINE HYDROCHLORIDE
     Indication: Tinea pedis
     Dosage: 1 APPLICATION TO FEET, BILATERALLY, 1X/DAY
     Route: 061
     Dates: start: 20210514, end: 20210602
  2. NAFTIN [Suspect]
     Active Substance: NAFTIFINE HYDROCHLORIDE
     Indication: Onychomycosis
  3. LOSARTAN [Concomitant]
     Active Substance: LOSARTAN
  4. OMEPRAZOLE [Concomitant]
     Active Substance: OMEPRAZOLE
  5. PROCARDIA [Concomitant]
     Active Substance: NIFEDIPINE
  6. VITAMINS [Concomitant]
     Active Substance: VITAMINS
  7. BIOTIN [Concomitant]
     Active Substance: BIOTIN
  8. VITAMIN D [Concomitant]
     Active Substance: VITAMIN D NOS
  9. TYLENOL [Concomitant]
     Active Substance: ACETAMINOPHEN
     Dosage: UNK, AS NEEDED
  10. GOLD BOND MOISTURIZING LOTION [Concomitant]
     Dosage: NOT USED ON HER FEET
  11. COLLAGEN PEPTIDES [Concomitant]

REACTIONS (1)
  - Dysphonia [Not Recovered/Not Resolved]

NARRATIVE: CASE EVENT DATE: 20210528
